FAERS Safety Report 16763798 (Version 3)
Quarter: 2019Q4

REPORT INFORMATION
  Report Type: Report from Study
  Country: None (occurrence: US)
  Receive Date: 20190902
  Receipt Date: 20191111
  Transmission Date: 20200122
  Serious: Yes (Other)
  Sender: FDA-Public Use
  Company Number: US-INSMED, INC.-US-INS-19-02105

PATIENT
  Age: 75 Year
  Sex: Male

DRUGS (3)
  1. LAMIRA NEBULIZER SYSTEM [Suspect]
     Active Substance: DEVICE
  2. ARIKAYCE [Suspect]
     Active Substance: AMIKACIN
     Indication: MYCOBACTERIUM AVIUM COMPLEX INFECTION
     Route: 055
     Dates: end: 201907
  3. PREDNISONE. [Concomitant]
     Active Substance: PREDNISONE
     Indication: PRODUCT USED FOR UNKNOWN INDICATION
     Dates: start: 201907

REACTIONS (9)
  - Oropharyngeal pain [Unknown]
  - Fatigue [Unknown]
  - Haemoptysis [Unknown]
  - Weight decreased [Unknown]
  - Listless [Unknown]
  - Decreased appetite [Unknown]
  - Productive cough [Unknown]
  - Pulmonary mycosis [Unknown]
  - Lung disorder [Unknown]

NARRATIVE: CASE EVENT DATE: 2019
